FAERS Safety Report 16809611 (Version 1)
Quarter: 2019Q3

REPORT INFORMATION
  Report Type: Spontaneous
  Country: AT (occurrence: AT)
  Receive Date: 20190916
  Receipt Date: 20190916
  Transmission Date: 20191005
  Serious: Yes (Hospitalization)
  Sender: FDA-Public Use
  Company Number: AT-AMGEN-AUTNI2018137559

PATIENT
  Age: 58 Year
  Sex: Female
  Weight: 75 kg

DRUGS (40)
  1. TRASTUZUMAB. [Suspect]
     Active Substance: TRASTUZUMAB
     Dosage: MOST RECENT DOSE ON 14/MAR/2018
     Route: 042
     Dates: start: 20170321, end: 20170523
  2. KREON [Concomitant]
     Active Substance: PANCRELIPASE
     Route: 065
     Dates: start: 20180215
  3. CITALOPRAM [Concomitant]
     Active Substance: CITALOPRAM HYDROBROMIDE
     Dosage: UNK
     Route: 065
  4. CITALOPRAM [Concomitant]
     Active Substance: CITALOPRAM HYDROBROMIDE
  5. CEOLAT [Concomitant]
  6. ESOMEPRAZOLE. [Concomitant]
     Active Substance: ESOMEPRAZOLE MAGNESIUM
     Indication: GASTROENTERITIS RADIATION
     Route: 065
     Dates: start: 20180819, end: 20180819
  7. ZOFRAN [Concomitant]
     Active Substance: ONDANSETRON HYDROCHLORIDE
     Route: 065
     Dates: start: 20170923
  8. DIMENHYDRINATE. [Concomitant]
     Active Substance: DIMENHYDRINATE
     Route: 065
     Dates: start: 20171023
  9. VERTIROSAN [Concomitant]
     Dosage: UNK
     Route: 065
  10. GUTTALAX [Concomitant]
     Active Substance: SODIUM PICOSULFATE
     Dosage: UNK
     Route: 065
     Dates: start: 20171023
  11. NORGESIC [Concomitant]
     Active Substance: ASPIRIN\CAFFEINE\ORPHENADRINE CITRATE
     Dosage: UNK
     Route: 065
  12. LYRICA [Concomitant]
     Active Substance: PREGABALIN
     Indication: MUSCULOSKELETAL PAIN
     Dosage: UNK
     Route: 065
  13. NEXIUM [Concomitant]
     Active Substance: ESOMEPRAZOLE MAGNESIUM
     Indication: GASTROENTERITIS RADIATION
     Dosage: UNK
     Route: 065
  14. ESOMEPRAZOLE. [Concomitant]
     Active Substance: ESOMEPRAZOLE MAGNESIUM
     Dosage: ONGOING = CHECKED
     Route: 065
     Dates: start: 20180115
  15. KREON [Concomitant]
     Active Substance: PANCRELIPASE
     Indication: GASTROENTERITIS RADIATION
     Dosage: UNK
     Route: 065
     Dates: start: 20180215
  16. CEOLAT [Concomitant]
     Dosage: UNK
     Route: 065
  17. BIOFLORIN [Concomitant]
     Dosage: UNK
     Route: 065
  18. NOVALGIN (METAMIZOLE SODIUM) [Concomitant]
     Active Substance: METAMIZOLE SODIUM
  19. TRASTUZUMAB. [Suspect]
     Active Substance: TRASTUZUMAB
     Indication: HER-2 POSITIVE BREAST CANCER
     Dosage: 450 MILLIGRAM
     Route: 042
  20. SERACTIL [Concomitant]
     Active Substance: DEXIBUPROFEN
     Indication: MUSCULOSKELETAL PAIN
     Dosage: UNK
     Route: 065
  21. HALDOL [Concomitant]
     Active Substance: HALOPERIDOL
     Route: 065
     Dates: start: 20171023
  22. PERJETA [Suspect]
     Active Substance: PERTUZUMAB
     Indication: HER-2 POSITIVE BREAST CANCER
     Dosage: MOST RECENT DOSE ON 14/MAR/2018
     Route: 042
     Dates: start: 20190321, end: 20190523
  23. TAXOL [Suspect]
     Active Substance: PACLITAXEL
     Indication: HER-2 POSITIVE BREAST CANCER
     Dosage: 155 MILLIGRAM
     Route: 042
  24. TRAMAL RETARD [Concomitant]
     Active Substance: TRAMADOL
     Dosage: UNK
     Route: 065
  25. TRAMAL RETARD [Concomitant]
     Active Substance: TRAMADOL
     Route: 065
     Dates: start: 20180425
  26. HALDOL [Concomitant]
     Active Substance: HALOPERIDOL
     Dosage: UNK
     Route: 065
  27. LYRICA [Concomitant]
     Active Substance: PREGABALIN
     Route: 065
     Dates: start: 20180129
  28. NOVALGIN [Concomitant]
     Indication: ABDOMINAL PAIN UPPER
     Dosage: UNK
     Route: 065
     Dates: start: 20180425, end: 20180909
  29. ZOFRAN [Concomitant]
     Active Substance: ONDANSETRON HYDROCHLORIDE
     Route: 065
     Dates: start: 20180819, end: 20180819
  30. GUTTALAX [Concomitant]
     Active Substance: SODIUM PICOSULFATE
     Route: 065
     Dates: start: 20171023
  31. MOLAXOLE [Concomitant]
     Active Substance: POLYETHYLENE GLYCOL 3350\POTASSIUM CHLORIDE\SODIUM BICARBONATE\SODIUM CHLORIDE
     Route: 065
     Dates: start: 20171023
  32. ZOFRAN [Concomitant]
     Active Substance: ONDANSETRON HYDROCHLORIDE
     Indication: SUBILEUS
     Dosage: UNK
     Route: 065
     Dates: start: 20180819, end: 20180819
  33. NOVALGIN [Concomitant]
     Indication: VOMITING
  34. NOVALGIN (METAMIZOLE SODIUM) [Concomitant]
     Active Substance: METAMIZOLE SODIUM
     Route: 065
     Dates: start: 20180909
  35. ENTEROCOCCUS FAECALIS [Concomitant]
     Active Substance: ENTEROCOCCUS FAECALIS
  36. TAXOL [Suspect]
     Active Substance: PACLITAXEL
     Dosage: MOST RECENT DOSE ON 06/JUN/2017
     Route: 042
     Dates: start: 20190521, end: 20190523
  37. XGEVA [Concomitant]
     Active Substance: DENOSUMAB
     Dosage: UNK
     Route: 065
     Dates: start: 20170613
  38. MOLAXOLE [Concomitant]
     Active Substance: POLYETHYLENE GLYCOL 3350\POTASSIUM CHLORIDE\SODIUM BICARBONATE\SODIUM CHLORIDE
     Dosage: UNK
     Route: 065
  39. SERACTIL [Concomitant]
     Active Substance: DEXIBUPROFEN
     Route: 065
     Dates: start: 20170919
  40. NORGESIC [ORPHENADRINE CITRATE;PARACETAMOL] [Concomitant]
     Route: 065

REACTIONS (7)
  - Vomiting [Recovered/Resolved]
  - Abdominal pain upper [Recovered/Resolved]
  - Off label use [Unknown]
  - Vertigo [Recovered/Resolved]
  - Somnolence [Recovered/Resolved]
  - Nausea [Recovered/Resolved]
  - Subileus [Recovered/Resolved]

NARRATIVE: CASE EVENT DATE: 20180819
